FAERS Safety Report 4410979-X (Version None)
Quarter: 2004Q3

REPORT INFORMATION
  Report Type: 
  Country: None (occurrence: None)
  Receive Date: 20040729
  Receipt Date: 20040705
  Transmission Date: 20050211
  Serious: Yes (Hospitalization)
  Sender: FDA-Public Use
  Company Number: FR-GLAXOSMITHKLINE-B0337954A

PATIENT
  Age: 84 Year
  Sex: Male

DRUGS (10)
  1. AUGMENTIN [Suspect]
     Indication: SUPERINFECTION LUNG
     Dosage: 3G PER DAY
     Route: 042
     Dates: start: 20040609, end: 20040610
  2. OFLOCET [Suspect]
     Indication: SUPERINFECTION LUNG
     Route: 042
     Dates: start: 20040609, end: 20040610
  3. LASIX [Concomitant]
     Indication: ILL-DEFINED DISORDER
     Dosage: 40MG PER DAY
     Route: 048
     Dates: start: 20040609
  4. LOVENOX [Concomitant]
     Indication: ILL-DEFINED DISORDER
     Route: 058
     Dates: start: 20040609, end: 20040610
  5. DILTIAZEM HYDROCHLORIDE [Concomitant]
     Indication: ILL-DEFINED DISORDER
     Route: 048
     Dates: end: 20040609
  6. ASPEGIC 325 [Concomitant]
     Indication: ILL-DEFINED DISORDER
     Route: 048
     Dates: end: 20040610
  7. KALEORID [Concomitant]
     Route: 048
  8. VASTAREL [Concomitant]
     Indication: ILL-DEFINED DISORDER
     Route: 048
  9. NITROGLYCERIN [Concomitant]
     Indication: ANGINA PECTORIS
     Route: 061
  10. DIGOXIN [Concomitant]
     Indication: ILL-DEFINED DISORDER
     Route: 065
     Dates: end: 20040603

REACTIONS (3)
  - ERYTHEMA [None]
  - PRURITUS [None]
  - VASCULAR PURPURA [None]
